FAERS Safety Report 4577427-0 (Version None)
Quarter: 2005Q1

REPORT INFORMATION
  Report Type: 
  Country: None (occurrence: None)
  Receive Date: 20050208
  Receipt Date: 20050202
  Transmission Date: 20050727
  Serious: Yes (Hospitalization)
  Sender: FDA-Public Use
  Company Number: TCI2004A04682

PATIENT
  Age: 76 Year
  Sex: Female

DRUGS (7)
  1. ACTOS [Suspect]
     Indication: DIABETES MELLITUS NON-INSULIN-DEPENDENT
     Dosage: 15 MG (15 MG, 1 IN 1 D) PER ORAL
     Route: 048
     Dates: start: 20041023, end: 20041125
  2. AMARYL [Suspect]
     Dosage: 3 MG (3 MG, 1 IN 1 D) PER ORAL
     Route: 048
     Dates: start: 20031128, end: 20041125
  3. LASIX [Suspect]
     Indication: OEDEMA
     Dosage: 20 MG (20 MG, 1 IN 1 D) PER ORAL
     Route: 048
     Dates: end: 20041208
  4. BASEN TABLETS 0.3  (VOGLIBOSE) [Concomitant]
  5. BLOPRESS (CANDESARTAN CILEXETIL) [Concomitant]
  6. METHYCOBAL (MECOBALAMIN) [Concomitant]
  7. URSODIOL [Concomitant]

REACTIONS (11)
  - ALPHA 1 FOETOPROTEIN INCREASED [None]
  - ASCITES [None]
  - DIABETES MELLITUS INADEQUATE CONTROL [None]
  - DIFFICULTY IN WALKING [None]
  - GASTRIC DISORDER [None]
  - GENERALISED OEDEMA [None]
  - HEPATIC ATROPHY [None]
  - HYPOKALAEMIA [None]
  - PANCREATIC DISORDER [None]
  - PLEURAL EFFUSION [None]
  - REFUSAL OF TREATMENT BY PATIENT [None]
